FAERS Safety Report 24261543 (Version 2)
Quarter: 2024Q3

REPORT INFORMATION
  Report Type: Spontaneous
  Country: PE (occurrence: PE)
  Receive Date: 20240829
  Receipt Date: 20240918
  Transmission Date: 20241017
  Serious: Yes (Other)
  Sender: ABBVIE
  Company Number: PE-ABBOTT-2024A-1386671

PATIENT
  Age: 33 Year
  Sex: Female

DRUGS (2)
  1. VALPROATE SODIUM [Suspect]
     Active Substance: VALPROATE SODIUM
     Indication: Migraine prophylaxis
     Dosage: THE PATIENT TOOK 1 TABLET AT NIGHT. THIS WAS THE FIRST TIME THE PATIENT HAD TAKEN VALCOTE.?VALCOT...
     Route: 048
     Dates: start: 20240821, end: 20240821
  2. RIMEGEPANT [Suspect]
     Active Substance: RIMEGEPANT
     Indication: Migraine
     Dosage: THE PATIENT TOOK 1 TABLET IN THE MORNING.
     Route: 065
     Dates: start: 20240822

REACTIONS (5)
  - Paraesthesia [Recovering/Resolving]
  - Seizure [Unknown]
  - Syncope [Recovering/Resolving]
  - Vomiting [Recovering/Resolving]
  - Generalised tonic-clonic seizure [Recovering/Resolving]

NARRATIVE: CASE EVENT DATE: 20240822
